FAERS Safety Report 9603753 (Version 1)
Quarter: 2013Q4

REPORT INFORMATION
  Report Type: Spontaneous
  Country: US (occurrence: US)
  Receive Date: 20131007
  Receipt Date: 20131007
  Transmission Date: 20140711
  Serious: No
  Sender: FDA-Public Use
  Company Number: US-009507513-1309USA007083

PATIENT
  Sex: 0

DRUGS (24)
  1. ZETIA [Suspect]
     Route: 048
  2. FUROSEMIDE [Concomitant]
     Dosage: 1 DF, QD
     Route: 048
  3. JANTOVEN [Concomitant]
     Dosage: 1 1/2 TABLET, QD
     Route: 048
  4. ZOCOR [Concomitant]
     Dosage: 1 DF, HS
  5. DIGOXIN [Concomitant]
     Dosage: 1 DF, QD
     Route: 048
  6. TIKOSYN [Concomitant]
     Dosage: 1 DF, QD
     Route: 048
  7. METOPROLOL [Concomitant]
     Dosage: 1 DF, TID
     Route: 048
  8. ACETAMINOPHEN (+) HYDROCODONE BITARTRATE [Concomitant]
     Dosage: 1 DF, PRN
     Route: 048
  9. GLIPIZIDE [Concomitant]
     Dosage: 5 MG, TID
     Route: 048
  10. XOLEGEL [Concomitant]
     Route: 061
  11. NEO-SYNEPHRINE [Concomitant]
     Dosage: SPRAY 1 TO 2 SPRAYS IN EACH NOSTRIL Q 3 TO 4 HR
     Route: 045
  12. KETOCONAZOLE [Concomitant]
     Dosage: APPLY SUFFICIENT AMOUNT TO AFFECTED AREA DAILY
  13. OMEGA (OMEPRAZOLE) [Concomitant]
     Dosage: 1200 MG, QID
     Route: 048
  14. PANDEL [Concomitant]
     Dosage: APPLY THIN FILM TO AFFECTED AREA BID
  15. PROAIR HFA [Concomitant]
     Dosage: 90 NCG/1 ACTUATION INHALE 2 PUFF BY MOUTH Q 4 TO 6 HRS
     Route: 055
  16. ANUCORT-HC [Concomitant]
     Dosage: INSERT 1 SUPPOSITORY RECTALLY ARM AND PRN
  17. JANUVIA [Concomitant]
     Dosage: 1 DF, QD
     Route: 048
  18. LEVOTHYROXINE SODIUM [Concomitant]
     Dosage: 1 DF, QD
     Route: 048
  19. TOBRADEX [Concomitant]
     Dosage: OPHTHALMIC OINTMENT
     Route: 047
  20. STROMECTOL [Concomitant]
     Dosage: 5 DF, QOW
     Route: 048
  21. TYLENOL [Concomitant]
     Dosage: 2 DF, HS
     Route: 048
  22. ZYRTEC [Concomitant]
  23. VITAMINS (UNSPECIFIED) [Concomitant]
  24. NEXIUM [Concomitant]
     Dosage: DELAYED RELEASE PRN
     Route: 048

REACTIONS (2)
  - Drug hypersensitivity [Unknown]
  - Abdominal pain [Unknown]
